FAERS Safety Report 12482952 (Version 1)
Quarter: 2016Q2

REPORT INFORMATION
  Report Type: Report from Study
  Country: US (occurrence: US)
  Receive Date: 20160620
  Receipt Date: 20160620
  Transmission Date: 20160815
  Serious: Yes (Other)
  Sender: FDA-Public Use
  Company Number: US-JNJFOC-20160616032

PATIENT
  Age: 69 Year
  Sex: Male

DRUGS (1)
  1. IMBRUVICA [Suspect]
     Active Substance: IBRUTINIB
     Indication: CHRONIC LYMPHOCYTIC LEUKAEMIA
     Route: 048
     Dates: start: 20160126

REACTIONS (3)
  - Rash pruritic [Not Recovered/Not Resolved]
  - Lip injury [Unknown]
  - Lip haemorrhage [Recovered/Resolved]

NARRATIVE: CASE EVENT DATE: 20160527
